FAERS Safety Report 21131657 (Version 1)
Quarter: 2022Q3

REPORT INFORMATION
  Report Type: Spontaneous
  Country: US (occurrence: None)
  Receive Date: 20220726
  Receipt Date: 20220726
  Transmission Date: 20221027
  Serious: No
  Sender: FDA-Public Use
  Company Number: None

PATIENT
  Age: 28 Year
  Sex: Female

DRUGS (1)
  1. SANDOSTATIN LAR DEPOT [Suspect]
     Active Substance: OCTREOTIDE ACETATE
     Indication: Acromegaly
     Dosage: 10 MG  EVERY 28 DAYS INTRAMUSCULAR?
     Route: 030
     Dates: start: 20220504, end: 20220725

REACTIONS (2)
  - Headache [None]
  - Drug ineffective [None]

NARRATIVE: CASE EVENT DATE: 20220620
